FAERS Safety Report 11451860 (Version 1)
Quarter: 2015Q3

REPORT INFORMATION
  Report Type: Spontaneous
  Country: FR (occurrence: FR)
  Receive Date: 20150903
  Receipt Date: 20150903
  Transmission Date: 20151125
  Serious: Yes (Other)
  Sender: FDA-Public Use
  Company Number: FR-MALLINCKRODT-T201504094

PATIENT
  Age: 77 Year
  Sex: Male
  Weight: 73 kg

DRUGS (3)
  1. ATORVASTATINE [Concomitant]
     Active Substance: ATORVASTATIN
     Dosage: 20, 1/DAY
     Route: 048
  2. CO APROVEL [Concomitant]
     Active Substance: HYDROCHLOROTHIAZIDE\IRBESARTAN
     Dosage: 150, 1/DAY
     Route: 048
  3. OPTIJECT 350 [Suspect]
     Active Substance: IOVERSOL
     Indication: SCAN BRAIN
     Dosage: UNK, SINGLE
     Route: 042
     Dates: start: 20150803, end: 20150803

REACTIONS (1)
  - Diplopia [Not Recovered/Not Resolved]

NARRATIVE: CASE EVENT DATE: 20150804
